FAERS Safety Report 10289743 (Version 2)
Quarter: 2014Q3

REPORT INFORMATION
  Report Type: Report from Study
  Country: DE (occurrence: None)
  Receive Date: 20140708
  Receipt Date: 20140728
  Transmission Date: 20150326
  Serious: Yes (Death, Life-Threatening, Hospitalization)
  Sender: FDA-Public Use
  Company Number: DE-JNJFOC-20140619003

PATIENT
  Age: 80 Year
  Sex: Female
  Weight: 66 kg

DRUGS (15)
  1. HEPARIN (HEPARIN) UNSPECIFIED [Concomitant]
  2. CIPROFLOXACIN (CIPROFLOXACIN) UNSPECIFIED [Concomitant]
  3. NOVALGIN (METAMIZOLE SODIUM) UNSPECIFIED [Concomitant]
  4. PANTOPRAZOL (PANTOPRAZOLE) [Concomitant]
  5. TORASEMID (TORASEMIDE) UNSPECIFIED [Concomitant]
  6. MCP (METOCLOPRAMIDE) UNSPECIFIED [Concomitant]
  7. DECITABINE. [Suspect]
     Active Substance: DECITABINE
     Indication: ACUTE MYELOID LEUKAEMIA
     Dosage: 36.2 MG, IN 1 DAY, INTRAVENOUS
     Route: 042
     Dates: start: 20140611, end: 20140615
  8. ASS (ACETYLSALICYLIC ACID) UNSPECIFIED [Concomitant]
  9. TRIAMTEREN (TRIAMTERENE) UNSPECIFIED [Concomitant]
  10. CLEXANE (ENOXAPARIN SODIUM) UNSPECIFIED [Concomitant]
  11. AMPHOMORONAL (AMPHOTERICIN B) UNSPECIFIED [Concomitant]
  12. TAZABAC (TAZABACTAM) UNSPECIFIED [Concomitant]
  13. METOPROLOL (METOPROLOL) UNSPECIFIED [Concomitant]
  14. FENTANYL (FENTANYL) UNSPECIFIED [Concomitant]
  15. LACTULOSE (LACTULOSE) [Concomitant]
     Active Substance: LACTULOSE

REACTIONS (2)
  - Herpes zoster [None]
  - Pulmonary oedema [None]

NARRATIVE: CASE EVENT DATE: 20140625
